FAERS Safety Report 6243892-6 (Version None)
Quarter: 2009Q2

REPORT INFORMATION
  Report Type: 
  Country: None (occurrence: None)
  Receive Date: 20090623
  Receipt Date: 20090609
  Transmission Date: 20091009
  Serious: Yes (Death)
  Sender: FDA-Public Use
  Company Number: B0579548A

PATIENT

DRUGS (5)
  1. MELPHALAN (FORMULATION UNKNOWN) (GENERIC) (MELPHALAN) [Suspect]
     Indication: MULTIPLE MYELOMA
     Dosage: 8 MG/M2 / CYCLIC / ORAL
     Route: 048
  2. VINCRISTINE [Suspect]
     Indication: MULTIPLE MYELOMA
     Dosage: 1.2 MG/M2 / CYCLIC
  3. CARMUSTINE [Suspect]
     Indication: MULTIPLE MYELOMA
     Dosage: 20 MG/M2 / CYCLIC / INTRAVENOUS
     Route: 042
  4. CYCLOPHOSPHAMIDE [Suspect]
     Indication: MULTIPLE MYELOMA
     Dosage: 400 MG/M2 / CYCLIC / INTRAVENOUS
     Route: 042
  5. PREDNISONE [Suspect]
     Indication: MULTIPLE MYELOMA
     Dosage: 40 MG/M2 / CYCLIC / ORAL
     Route: 048

REACTIONS (1)
  - INFLAMMATION [None]
